FAERS Safety Report 4689568-8 (Version None)
Quarter: 2005Q2

REPORT INFORMATION
  Report Type: 
  Country: None (occurrence: None)
  Receive Date: 20050613
  Receipt Date: 20050613
  Transmission Date: 20051028
  Serious: Yes (Other)
  Sender: FDA-Public Use
  Company Number: None

PATIENT
  Age: 79 Year
  Sex: Male
  Weight: 84.6866 kg

DRUGS (2)
  1. LEUKINE [Suspect]
     Indication: CHEMOTHERAPY
     Dosage: 500 MCG SQ X 10 DAILY CONTINUED TILL 6/2
     Route: 058
     Dates: start: 20050524, end: 20050527
  2. LEUKINE [Suspect]
     Indication: LYMPHOMA
     Dosage: 500 MCG SQ X 10 DAILY CONTINUED TILL 6/2
     Route: 058
     Dates: start: 20050524, end: 20050527

REACTIONS (5)
  - BLOOD PRESSURE SYSTOLIC INCREASED [None]
  - DIZZINESS [None]
  - HYPERHIDROSIS [None]
  - PALLOR [None]
  - SPEECH DISORDER [None]
